FAERS Safety Report 23629018 (Version 1)
Quarter: 2024Q1

REPORT INFORMATION
  Report Type: Spontaneous
  Country: DE (occurrence: DE)
  Receive Date: 20240313
  Receipt Date: 20240313
  Transmission Date: 20240410
  Serious: Yes (Other)
  Sender: FDA-Public Use
  Company Number: DE-GILEAD-2024-0665234

PATIENT
  Age: 33 Year
  Sex: Female

DRUGS (1)
  1. TECARTUS [Suspect]
     Active Substance: BREXUCABTAGENE AUTOLEUCEL
     Indication: Product used for unknown indication
     Route: 065

REACTIONS (3)
  - Infection susceptibility increased [Unknown]
  - Thrombocytopenia [Unknown]
  - Pyrexia [Unknown]
